FAERS Safety Report 8382754-5 (Version None)
Quarter: 2012Q2

REPORT INFORMATION
  Report Type: 
  Country: None (occurrence: None)
  Receive Date: 20120524
  Receipt Date: 20120516
  Transmission Date: 20120825
  Serious: Yes (Hospitalization)
  Sender: FDA-Public Use
  Company Number: JP-AMGEN-JPNCT2012032033

PATIENT
  Age: 70 Year
  Sex: Female

DRUGS (2)
  1. BLINDED PLACEBO [Suspect]
     Indication: RHEUMATOID ARTHRITIS
     Dosage: 60 MG, UNK
     Route: 058
     Dates: start: 20110620
  2. BLINDED DENOSUMAB [Suspect]
     Indication: RHEUMATOID ARTHRITIS
     Dosage: 60 MG, UNK
     Route: 058
     Dates: start: 20110620

REACTIONS (1)
  - THORACIC VERTEBRAL FRACTURE [None]
